FAERS Safety Report 10442647 (Version 3)
Quarter: 2014Q3

REPORT INFORMATION
  Report Type: Spontaneous
  Country: US (occurrence: US)
  Receive Date: 20140909
  Receipt Date: 20140918
  Transmission Date: 20150326
  Serious: Yes (Other)
  Sender: FDA-Public Use
  Company Number: US-PFIZER INC-2014245994

PATIENT
  Age: 71 Year
  Sex: Female
  Weight: 119 kg

DRUGS (13)
  1. NORVASC [Concomitant]
     Active Substance: AMLODIPINE BESYLATE
     Dosage: 5 MG, 1X/DAY
     Route: 048
  2. TENORMIN [Concomitant]
     Active Substance: ATENOLOL
     Dosage: 50 MG, 2X/DAY
     Route: 048
  3. PRINIVIL [Concomitant]
     Active Substance: LISINOPRIL
     Dosage: 40 MG, 1X/DAY
     Route: 048
  4. ELIQUIS [Concomitant]
     Active Substance: APIXABAN
     Dosage: 5 MG, 2X/DAY
     Route: 048
  5. TAMBOCOR [Concomitant]
     Active Substance: FLECAINIDE ACETATE
     Dosage: 100 MG, 2X/DAY
     Route: 048
  6. REVATIO [Suspect]
     Active Substance: SILDENAFIL CITRATE
     Indication: PULMONARY HYPERTENSION
     Dosage: 30 MG, 3X/DAY (1.5 TABS)
     Route: 048
  7. DICLOFENAC SODIUM. [Concomitant]
     Active Substance: DICLOFENAC SODIUM
     Dosage: 1 %, 4X/DAY
     Route: 061
  8. FLONASE [Concomitant]
     Active Substance: FLUTICASONE PROPIONATE
     Dosage: 1 SPRAY BY EACH NOSTRIL ROUTE TWICE DAILY
     Route: 045
  9. ASPIRIN. [Concomitant]
     Active Substance: ASPIRIN
     Dosage: 81 MG, 1X/DAY
     Route: 048
  10. SYNTHROID [Concomitant]
     Active Substance: LEVOTHYROXINE SODIUM
     Dosage: 100MCG BY MOUTH ONCE A DAY
     Route: 048
  11. TAMBOCOR [Concomitant]
     Active Substance: FLECAINIDE ACETATE
     Dosage: 50 MG, 2X/DAY
     Route: 048
  12. ULTRAM [Concomitant]
     Active Substance: TRAMADOL HYDROCHLORIDE
     Dosage: 50 MG, 4X/DAY (1 TAB (50 MG TOTAL) BY MOUTH EVERY 6 HOURS AS NEEDED)
     Route: 048
  13. LASIX [Concomitant]
     Active Substance: FUROSEMIDE
     Dosage: 20 MG, 1X/DAY
     Route: 048

REACTIONS (6)
  - Atrial fibrillation [Unknown]
  - Arthralgia [Unknown]
  - Cardiac failure congestive [Unknown]
  - Drug ineffective [Unknown]
  - Dyspnoea [Unknown]
  - Peripheral swelling [Unknown]
